FAERS Safety Report 14249787 (Version 1)
Quarter: 2017Q4

REPORT INFORMATION
  Report Type: Spontaneous
  Country: US (occurrence: US)
  Receive Date: 20171204
  Receipt Date: 20171204
  Transmission Date: 20180321
  Serious: Yes (Other)
  Sender: FDA-Public Use
  Company Number: None

PATIENT
  Age: 53 Year
  Sex: Female
  Weight: 76.5 kg

DRUGS (3)
  1. FDGUARD [Concomitant]
  2. PANTOPRAZOLE [Suspect]
     Active Substance: PANTOPRAZOLE
     Indication: GASTROOESOPHAGEAL REFLUX DISEASE
     Dosage: ?          QUANTITY:1 TABLET(S);?
     Route: 048
     Dates: start: 20171031, end: 20171123
  3. SUCRALFATE. [Concomitant]
     Active Substance: SUCRALFATE

REACTIONS (3)
  - Heart rate increased [None]
  - Blood pressure systolic increased [None]
  - Therapy change [None]

NARRATIVE: CASE EVENT DATE: 20171123
